FAERS Safety Report 5413265-4 (Version None)
Quarter: 2007Q3

REPORT INFORMATION
  Report Type: 
  Country: None (occurrence: None)
  Receive Date: 20070810
  Receipt Date: 20070726
  Transmission Date: 20080115
  Serious: Yes (Disabling)
  Sender: FDA-Public Use
  Company Number: CIP07001501

PATIENT
  Age: 76 Year
  Sex: Female

DRUGS (8)
  1. RISEDRONATE SODIUM [Suspect]
     Indication: OSTEOPOROSIS
     Dosage: 2.5 MG DAILY, ORAL
     Route: 048
     Dates: start: 20061204, end: 20061215
  2. THEO-DUR [Concomitant]
  3. KIPRES (MONTELUKAST SODIUM) [Concomitant]
  4. HUSTAZOL (CLOPERASTINE FENDIZOATE) [Concomitant]
  5. MUCOSOLVAN (AMBROXOL HYDROCHLORIDE) [Concomitant]
  6. NIVADIL (NILVADIPINE) [Concomitant]
  7. LIVALO (ITAVASTATIN CALCIUM) [Concomitant]
  8. ASPARA-CA (ASPARTATE CALCIUM) [Concomitant]

REACTIONS (1)
  - CEREBRAL HAEMORRHAGE [None]
